FAERS Safety Report 6094489-2 (Version None)
Quarter: 2009Q1

REPORT INFORMATION
  Report Type: 
  Country: None (occurrence: None)
  Receive Date: 20090224
  Receipt Date: 20090213
  Transmission Date: 20090719
  Serious: Yes (Death)
  Sender: FDA-Public Use
  Company Number: SPV1-2009-00231

PATIENT
  Age: 60 Year
  Sex: Male

DRUGS (3)
  1. ANAGRELIDE HYDROCHLORIDE [Suspect]
     Indication: ESSENTIAL THROMBOCYTHAEMIA
     Dates: start: 20050101, end: 20080101
  2. HYDREA [Suspect]
     Indication: ESSENTIAL THROMBOCYTHAEMIA
     Dates: start: 19960101, end: 20050101
  3. HYDREA [Suspect]
     Indication: ESSENTIAL THROMBOCYTHAEMIA
     Dates: start: 20080101

REACTIONS (2)
  - LEUKAEMIA [None]
  - POLYCYTHAEMIA [None]
